FAERS Safety Report 5200914-9 (Version None)
Quarter: 2007Q1

REPORT INFORMATION
  Report Type: 
  Country: None (occurrence: None)
  Receive Date: 20070108
  Receipt Date: 20070102
  Transmission Date: 20070707
  Serious: Yes (Other)
  Sender: FDA-Public Use
  Company Number: US-BRISTOL-MYERS SQUIBB COMPANY-13630082

PATIENT
  Age: 17 Year
  Sex: Male

DRUGS (5)
  1. MITOMYCIN-C BULK POWDER [Suspect]
     Route: 047
  2. COSOPT [Concomitant]
  3. ALPHAGAN [Concomitant]
  4. PREDNISONE TAB [Concomitant]
     Route: 048
  5. ENBREL [Concomitant]

REACTIONS (1)
  - STAPHYLOMA [None]
